FAERS Safety Report 8243206-6 (Version None)
Quarter: 2012Q1

REPORT INFORMATION
  Report Type: 
  Country: None (occurrence: None)
  Receive Date: 20120329
  Receipt Date: 20120323
  Transmission Date: 20120608
  Serious: No
  Sender: FDA-Public Use
  Company Number: US-BAYER-2012-030091

PATIENT
  Sex: Female
  Weight: 90 kg

DRUGS (4)
  1. OMEPRAZOLE [Concomitant]
  2. SINGULAIR [Concomitant]
  3. ADVAIR DISKUS 100/50 [Concomitant]
  4. ALEVE (CAPLET) [Suspect]
     Indication: BACK PAIN
     Dosage: 2 DF, PRN
     Route: 048

REACTIONS (1)
  - THERAPEUTIC RESPONSE DECREASED [None]
